FAERS Safety Report 12523853 (Version 1)
Quarter: 2016Q3

REPORT INFORMATION
  Report Type: Spontaneous
  Country: GR (occurrence: GR)
  Receive Date: 20160704
  Receipt Date: 20160704
  Transmission Date: 20161109
  Serious: Yes (Other)
  Sender: FDA-Public Use
  Company Number: GR-ROCHE-1787700

PATIENT
  Age: 69 Year
  Sex: Female

DRUGS (13)
  1. PACLITAXEL. [Concomitant]
     Active Substance: PACLITAXEL
  2. GEMCITABINE HYDROCHLORIDE. [Concomitant]
     Active Substance: GEMCITABINE HYDROCHLORIDE
  3. TAMOXIFEN [Concomitant]
     Active Substance: TAMOXIFEN
  4. AFINITOR [Concomitant]
     Active Substance: EVEROLIMUS
  5. EXEMESTANE. [Suspect]
     Active Substance: EXEMESTANE
     Indication: BREAST CANCER METASTATIC
     Route: 065
  6. ANASTROZOLE. [Concomitant]
     Active Substance: ANASTROZOLE
  7. ABRAXANE [Concomitant]
     Active Substance: PACLITAXEL
  8. BEVACIZUMAB [Suspect]
     Active Substance: BEVACIZUMAB
     Indication: BREAST CANCER METASTATIC
     Route: 065
  9. CYCLOPHOSPHAMIDE. [Concomitant]
     Active Substance: CYCLOPHOSPHAMIDE
  10. CAPECITABINE. [Suspect]
     Active Substance: CAPECITABINE
     Indication: BREAST CANCER METASTATIC
     Route: 065
  11. NAVELBINE [Concomitant]
     Active Substance: VINORELBINE TARTRATE
  12. EPIRUBICIN HYDROCHLORIDE. [Concomitant]
     Active Substance: EPIRUBICIN HYDROCHLORIDE
  13. FASLODEX [Concomitant]
     Active Substance: FULVESTRANT

REACTIONS (1)
  - Acute lymphocytic leukaemia [Unknown]
